FAERS Safety Report 8094313-2 (Version None)
Quarter: 2012Q1

REPORT INFORMATION
  Report Type: 
  Country: None (occurrence: None)
  Receive Date: 20120130
  Receipt Date: 20120128
  Transmission Date: 20120608
  Serious: No
  Sender: FDA-Public Use
  Company Number: US-PFIZER INC-2012023594

PATIENT
  Sex: Female
  Weight: 66.667 kg

DRUGS (7)
  1. CHANTIX [Suspect]
     Indication: SMOKING CESSATION THERAPY
     Dosage: 0.5 MG, 1X/DAY
     Route: 048
     Dates: start: 20120125
  2. MULTI-VITAMINS [Concomitant]
     Dosage: UNK
  3. VITAMIN D [Concomitant]
     Dosage: UNK
  4. VITAMIN B COMPLEX CAP [Concomitant]
     Dosage: UNK
  5. PROZAC [Concomitant]
     Indication: DEPRESSION
     Dosage: UNK
  6. GEMFIBROZIL [Concomitant]
     Indication: BLOOD CHOLESTEROL INCREASED
     Dosage: UNK
  7. LOVAZA [Concomitant]
     Dosage: UNK

REACTIONS (2)
  - FATIGUE [None]
  - BOREDOM [None]
